FAERS Safety Report 8401047-0 (Version None)
Quarter: 2012Q2

REPORT INFORMATION
  Report Type: 
  Country: None (occurrence: None)
  Receive Date: 20120525
  Receipt Date: 20120515
  Transmission Date: 20120825
  Serious: Yes (Other)
  Sender: FDA-Public Use
  Company Number: 1205-254

PATIENT
  Age: 83 Year
  Sex: Male

DRUGS (1)
  1. EYLEA [Suspect]
     Indication: AGE-RELATED MACULAR DEGENERATION
     Dosage: INTRAVITREAL
     Dates: start: 20120101, end: 20120301

REACTIONS (2)
  - VISUAL IMPAIRMENT [None]
  - RETINAL HAEMORRHAGE [None]
